FAERS Safety Report 20560425 (Version 1)
Quarter: 2022Q1

REPORT INFORMATION
  Report Type: Spontaneous
  Country: US (occurrence: None)
  Receive Date: 20220304
  Receipt Date: 20220304
  Transmission Date: 20220423
  Serious: No
  Sender: FDA-Public Use
  Company Number: None

PATIENT
  Age: 69 Year
  Sex: Female
  Weight: 95 kg

DRUGS (11)
  1. EVEROLIMUS [Suspect]
     Active Substance: EVEROLIMUS
     Indication: Breast cancer
     Dosage: FREQUENCY : DAILY;?
     Route: 048
     Dates: start: 20220209
  2. ALBUTEROL SULFATE [Concomitant]
     Active Substance: ALBUTEROL SULFATE
  3. Aspirin [Concomitant]
  4. Calcium-Vitamin D [Concomitant]
  5. LEVOTHYROXINE [Concomitant]
  6. LOSARTAN [Concomitant]
     Active Substance: LOSARTAN
  7. Serevent Diskus [Concomitant]
  8. SERTRALINE [Concomitant]
  9. VENTOLIN HFA [Concomitant]
     Active Substance: ALBUTEROL SULFATE
  10. Vitamin D [Concomitant]
  11. Pencillin V [Concomitant]

REACTIONS (9)
  - Pruritus [None]
  - Cough [None]
  - Asthenia [None]
  - Dyspnoea [None]
  - Insomnia [None]
  - Retching [None]
  - Nausea [None]
  - Weight decreased [None]
  - Stomatitis [None]

NARRATIVE: CASE EVENT DATE: 20220303
